FAERS Safety Report 22727568 (Version 8)
Quarter: 2025Q2

REPORT INFORMATION
  Report Type: Report from Study
  Country: MX (occurrence: MX)
  Receive Date: 20230720
  Receipt Date: 20250605
  Transmission Date: 20250717
  Serious: Yes (Other)
  Sender: AMGEN
  Company Number: MX-002147023-NVSC2023MX159685

PATIENT
  Age: 46 Year
  Sex: Female
  Weight: 59.5 kg

DRUGS (11)
  1. ERENUMAB [Suspect]
     Active Substance: ERENUMAB
     Indication: Migraine
     Route: 058
     Dates: start: 20200320
  2. ERENUMAB [Suspect]
     Active Substance: ERENUMAB
     Route: 058
  3. ERENUMAB [Suspect]
     Active Substance: ERENUMAB
     Route: 058
  4. ERENUMAB [Suspect]
     Active Substance: ERENUMAB
     Route: 065
  5. FLUNARIZINE [Concomitant]
     Active Substance: FLUNARIZINE
     Indication: Product used for unknown indication
     Route: 065
  6. ZOMIG [Concomitant]
     Active Substance: ZOLMITRIPTAN
     Indication: Pain
     Dosage: 2 DOSAGE FORM (2.5 MG TABLET), PRN
     Route: 060
     Dates: start: 2020, end: 2020
  7. ZOMIG [Concomitant]
     Active Substance: ZOLMITRIPTAN
     Indication: Migraine
  8. Alin [Concomitant]
     Indication: Pain
     Route: 030
     Dates: end: 2020
  9. Alin [Concomitant]
     Indication: Migraine
  10. TOPAMAX [Concomitant]
     Active Substance: TOPIRAMATE
     Indication: Migraine
     Dosage: 1 DOSAGE FORM, QD
     Route: 048
     Dates: end: 2020
  11. AMITRIPTYLINE [Concomitant]
     Active Substance: AMITRIPTYLINE
     Indication: Product used for unknown indication
     Route: 065

REACTIONS (3)
  - Migraine [Recovering/Resolving]
  - Insomnia [Unknown]
  - Tension headache [Not Recovered/Not Resolved]

NARRATIVE: CASE EVENT DATE: 20231002
